FAERS Safety Report 4585746-7 (Version None)
Quarter: 2005Q1

REPORT INFORMATION
  Report Type: 
  Country: None (occurrence: None)
  Receive Date: 20050214
  Receipt Date: 20050204
  Transmission Date: 20050727
  Serious: Yes (Other)
  Sender: FDA-Public Use
  Company Number: 200510006BCA

PATIENT
  Age: 34 Year
  Sex: Male

DRUGS (17)
  1. GAMUNEX [Suspect]
     Indication: HYPOGAMMAGLOBULINAEMIA
     Dosage: SEE  IMAGE
     Route: 042
     Dates: start: 19970101
  2. GAMUNEX [Suspect]
     Indication: IDIOPATHIC THROMBOCYTOPENIC PURPURA
     Dosage: SEE  IMAGE
     Route: 042
     Dates: start: 19970101
  3. GAMUNEX [Suspect]
  4. GAMUNEX [Suspect]
  5. GAMUNEX [Suspect]
  6. GAMUNEX [Suspect]
  7. GAMUNEX [Suspect]
  8. GAMUNEX [Suspect]
  9. GAMUNEX [Suspect]
  10. GAMUNEX [Suspect]
  11. GAMUNEX [Suspect]
  12. ZINC [Concomitant]
  13. PREDNISONE [Concomitant]
  14. BIAXIN [Concomitant]
  15. LASIX [Concomitant]
  16. SPIROLACTONE [Concomitant]
  17. IRON [Concomitant]

REACTIONS (2)
  - ANTIBODY TEST POSITIVE [None]
  - LABORATORY TEST ABNORMAL [None]
